FAERS Safety Report 19380369 (Version 1)
Quarter: 2021Q2

REPORT INFORMATION
  Report Type: Spontaneous
  Country: US (occurrence: US)
  Receive Date: 20210604
  Receipt Date: 20210604
  Transmission Date: 20210717
  Serious: No
  Sender: FDA-Public Use
  Company Number: None

PATIENT
  Age: 77 Year
  Sex: Female

DRUGS (8)
  1. ACTHAR [Suspect]
     Active Substance: CORTICOTROPIN
     Indication: OPTIC NEURITIS
     Dosage: ?          OTHER DOSE:40UNITS/0.5ML;?
     Route: 058
     Dates: start: 20201010, end: 2021
  2. COSOPT OCUMETER PLUS OPH SOLN 10ML [Concomitant]
  3. FOLIC ACID 1MG TABLETS [Concomitant]
     Active Substance: FOLIC ACID
  4. ACULAR 0.4% OPHTH SOLOTION 5ML [Concomitant]
  5. LATANOPROST 0.05% OPHTH SOLN 2.5ML [Concomitant]
  6. BRIMONIDINE 0.15% OPHTH SOLN 10ML [Concomitant]
  7. ALPHAGAN P 0.15% OPHTH SOLN 5ML [Concomitant]
  8. BACTRIM DS (800?160MG) TABLETS [Concomitant]

REACTIONS (1)
  - Infection [None]
